FAERS Safety Report 6338426-1 (Version None)
Quarter: 2009Q3

REPORT INFORMATION
  Report Type: 
  Country: None (occurrence: None)
  Receive Date: 20090902
  Receipt Date: 20090827
  Transmission Date: 20100115
  Serious: Yes (Other)
  Sender: FDA-Public Use
  Company Number: JP-MERCK-0908USA03829

PATIENT
  Age: 79 Year
  Sex: Female
  Weight: 40 kg

DRUGS (5)
  1. FOSAMAX [Suspect]
     Indication: OSTEOPOROSIS
     Route: 048
     Dates: start: 20040101, end: 20090721
  2. ASPIRIN [Concomitant]
     Route: 048
  3. CONIEL [Concomitant]
     Route: 048
  4. BLOPRESS [Concomitant]
     Route: 048
  5. DERMOVATE [Concomitant]
     Route: 061

REACTIONS (2)
  - MEDICATION ERROR [None]
  - STOMATITIS [None]
